FAERS Safety Report 6476560-6 (Version None)
Quarter: 2009Q4

REPORT INFORMATION
  Report Type: 
  Country: None (occurrence: None)
  Receive Date: 20091207
  Receipt Date: 20091125
  Transmission Date: 20100525
  Serious: Yes (Hospitalization)
  Sender: FDA-Public Use
  Company Number: US-KINGPHARMUSA00001-K200701643

PATIENT

DRUGS (11)
  1. ALTACE [Suspect]
     Indication: HYPERTENSION
     Dosage: UNK, UNK
     Route: 048
     Dates: start: 20060101, end: 20070725
  2. ALTACE [Suspect]
     Dosage: 2.5 MG QD
     Route: 048
     Dates: start: 20070726, end: 20070728
  3. KARDEGIC                           /00002703/ [Concomitant]
     Indication: THROMBOSIS PROPHYLAXIS
     Dosage: 160 MG
     Route: 048
     Dates: start: 20070726, end: 20070728
  4. KARDEGIC                           /00002703/ [Concomitant]
     Dosage: 160MG
     Route: 048
     Dates: start: 20070101, end: 20070725
  5. CARDENSIEL [Suspect]
     Indication: CARDIAC FAILURE
     Dosage: 1.25 MG QD
     Route: 048
     Dates: start: 20060101, end: 20070728
  6. CORDARONE [Suspect]
     Indication: ARRHYTHMIA
     Dosage: 200 MG QD
     Route: 048
     Dates: start: 20060101, end: 20070728
  7. CONTRAMAL [Concomitant]
     Dates: start: 20070714
  8. AUGMENTIN '125' [Concomitant]
     Dates: start: 20070714
  9. DEBRIDAT                           /00465202/ [Concomitant]
     Dates: start: 20070714
  10. PRIMPERAN                          /00041901/ [Concomitant]
     Dates: start: 20070714
  11. PARACETAMOL [Concomitant]
     Dates: start: 20070714

REACTIONS (14)
  - ABDOMINAL DISTENSION [None]
  - ABDOMINAL PAIN UPPER [None]
  - BLOOD BILIRUBIN INCREASED [None]
  - CERULOPLASMIN INCREASED [None]
  - CHOLECYSTITIS [None]
  - CHROMATURIA [None]
  - DIVERTICULUM [None]
  - HEPATITIS CHOLESTATIC [None]
  - HYPERTHYROIDISM [None]
  - JAUNDICE [None]
  - LIVER FUNCTION TEST ABNORMAL [None]
  - RENAL COLIC [None]
  - RESPIRATORY DISTRESS [None]
  - VOMITING [None]
